FAERS Safety Report 25697391 (Version 2)
Quarter: 2025Q3

REPORT INFORMATION
  Report Type: Report from Study
  Country: US (occurrence: US)
  Receive Date: 20250818
  Receipt Date: 20250819
  Transmission Date: 20251021
  Serious: Yes (Other)
  Sender: ABBVIE
  Company Number: US-ABBVIE-6173283

PATIENT
  Age: 65 Year
  Sex: Female

DRUGS (4)
  1. RINVOQ [Suspect]
     Active Substance: UPADACITINIB
     Indication: Colitis ulcerative
     Dosage: DOSING RINVOQ 45 MG TABLET BY MOUTH ONCE DAILY FOR 8 WEEKS (5/11/2024 SAMPLES)
     Route: 048
     Dates: start: 20240511, end: 20240706
  2. RINVOQ [Suspect]
     Active Substance: UPADACITINIB
     Indication: Colitis ulcerative
     Dosage: THEN RINVOQ 15 MG TABLET BY MOUTH ONE TIME DAILY
     Route: 048
  3. RINVOQ [Suspect]
     Active Substance: UPADACITINIB
     Indication: Colitis ulcerative
     Route: 048
     Dates: start: 20250508, end: 20250702
  4. RINVOQ [Suspect]
     Active Substance: UPADACITINIB
     Indication: Colitis ulcerative
     Dosage: STRENGTH 30 MG
     Route: 048
     Dates: start: 20250703

REACTIONS (15)
  - Meningitis aseptic [Unknown]
  - Fatigue [Unknown]
  - Abdominal pain [Unknown]
  - Stress [Not Recovered/Not Resolved]
  - Constipation [Unknown]
  - Haemorrhage [Not Recovered/Not Resolved]
  - Gastric infection [Unknown]
  - Vomiting [Recovered/Resolved]
  - Rash [Recovering/Resolving]
  - Asthenia [Unknown]
  - Arthralgia [Unknown]
  - Abdominal distension [Unknown]
  - Diarrhoea [Unknown]
  - Haematochezia [Unknown]
  - Mucous stools [Unknown]

NARRATIVE: CASE EVENT DATE: 20250101
